FAERS Safety Report 17818162 (Version 1)
Quarter: 2020Q2

REPORT INFORMATION
  Report Type: Spontaneous
  Country: US (occurrence: US)
  Receive Date: 20200522
  Receipt Date: 20200522
  Transmission Date: 20200714
  Serious: No
  Sender: FDA-Public Use
  Company Number: US-BAUSCH-BL-2019-060697

PATIENT
  Sex: Female

DRUGS (2)
  1. XIFAXAN [Suspect]
     Active Substance: RIFAXIMIN
     Indication: LIVER DISORDER
     Dosage: TAKING XIFAXAN SINCE MAR/2019 OR APRIL/2019 AND STOPPED ABOUT MONTH AGO FROM THE INITIAL REPORT
     Route: 048
     Dates: start: 2019, end: 2019
  2. XIFAXAN [Suspect]
     Active Substance: RIFAXIMIN
     Dosage: RESTARTED
     Route: 048

REACTIONS (3)
  - Inappropriate schedule of product administration [Unknown]
  - Therapy interrupted [Unknown]
  - Malaise [Unknown]

NARRATIVE: CASE EVENT DATE: 2019
